FAERS Safety Report 5869752-8 (Version None)
Quarter: 2008Q3

REPORT INFORMATION
  Report Type: 
  Country: None (occurrence: None)
  Receive Date: 20080904
  Receipt Date: 20080820
  Transmission Date: 20090109
  Serious: Yes (Other)
  Sender: FDA-Public Use
  Company Number: US-ELI_LILLY_AND_COMPANY-US200808004183

PATIENT
  Age: 66 Year
  Sex: Male

DRUGS (3)
  1. XIGRIS [Suspect]
     Dosage: OTHER; DAY 3 OF 4 DAYS
     Dates: start: 20080818
  2. DIFLUCAN [Concomitant]
  3. PROTONIL [Concomitant]

REACTIONS (4)
  - BLOOD ALKALINE PHOSPHATASE ABNORMAL [None]
  - BLOOD BILIRUBIN ABNORMAL [None]
  - LIVER FUNCTION TEST ABNORMAL [None]
  - OBSTRUCTION [None]
